FAERS Safety Report 17544323 (Version 1)
Quarter: 2020Q1

REPORT INFORMATION
  Report Type: Spontaneous
  Country: GB (occurrence: GB)
  Receive Date: 20200316
  Receipt Date: 20200316
  Transmission Date: 20200409
  Serious: Yes (Other)
  Sender: FDA-Public Use
  Company Number: GB-ROCHE-2562992

PATIENT
  Age: 4 Month
  Sex: Male
  Weight: 4.32 kg

DRUGS (8)
  1. MEROPENEM. [Concomitant]
     Active Substance: MEROPENEM
  2. MIDAZOLAM HYDROCHLORIDE. [Concomitant]
     Active Substance: MIDAZOLAM HYDROCHLORIDE
  3. FLUCLOXACILLIN [Concomitant]
     Active Substance: FLUCLOXACILLIN
  4. RANITIDINE. [Concomitant]
     Active Substance: RANITIDINE
  5. MORPHINE [Concomitant]
     Active Substance: MORPHINE
  6. GENTAMICIN. [Concomitant]
     Active Substance: GENTAMICIN
  7. TAMIFLU [Suspect]
     Active Substance: OSELTAMIVIR PHOSPHATE
     Indication: H1N1 INFLUENZA
     Dosage: 3RD DOSE
     Route: 048
     Dates: end: 20200107
  8. PIPERACILLIN AND TAZOBACTAM [Concomitant]
     Active Substance: PIPERACILLIN SODIUM\TAZOBACTAM SODIUM

REACTIONS (2)
  - Rectal haemorrhage [Recovered/Resolved]
  - Gastrointestinal disorder [Unknown]

NARRATIVE: CASE EVENT DATE: 20200108
